FAERS Safety Report 16170026 (Version 2)
Quarter: 2019Q3

REPORT INFORMATION
  Report Type: Spontaneous
  Country: CA (occurrence: CA)
  Receive Date: 20190408
  Receipt Date: 20190701
  Transmission Date: 20191004
  Serious: Yes (Other)
  Sender: FDA-Public Use
  Company Number: CA-PFIZER INC-2019144551

PATIENT
  Age: 68 Year
  Sex: Female

DRUGS (5)
  1. TECTA [Suspect]
     Active Substance: PANTOPRAZOLE MAGNESIUM
     Indication: DYSPEPSIA
     Dosage: UNK
  2. ESBRIET [Suspect]
     Active Substance: PIRFENIDONE
     Indication: IDIOPATHIC PULMONARY FIBROSIS
     Dosage: 267 MILLIGRAM, TID
     Route: 048
  3. ESBRIET [Suspect]
     Active Substance: PIRFENIDONE
     Dosage: 534 MILLIGRAM, TID
     Route: 048
  4. ESBRIET [Suspect]
     Active Substance: PIRFENIDONE
     Indication: IDIOPATHIC PULMONARY FIBROSIS
     Dosage: 801 MILLIGRAM, TID
     Route: 048
     Dates: start: 2017
  5. L-THYROXINE [LEVOTHYROXINE] [Concomitant]
     Active Substance: LEVOTHYROXINE
     Dosage: UNK

REACTIONS (17)
  - Fatigue [Not Recovered/Not Resolved]
  - Oxygen saturation decreased [Unknown]
  - Somnolence [Unknown]
  - Diarrhoea [Unknown]
  - Initial insomnia [Unknown]
  - Abdominal discomfort [Recovering/Resolving]
  - Dyspnoea [Not Recovered/Not Resolved]
  - Rash [Recovered/Resolved]
  - Hypopnoea [Unknown]
  - Sleep apnoea syndrome [Unknown]
  - Snoring [Unknown]
  - Decreased appetite [Recovering/Resolving]
  - Dizziness [Unknown]
  - Dyspepsia [Recovering/Resolving]
  - Dyspnoea exertional [Unknown]
  - Interstitial lung disease [Unknown]
  - Rales [Unknown]

NARRATIVE: CASE EVENT DATE: 201712
